FAERS Safety Report 4407588-5 (Version None)
Quarter: 2004Q3

REPORT INFORMATION
  Report Type: 
  Country: None (occurrence: None)
  Receive Date: 20040726
  Receipt Date: 20040402
  Transmission Date: 20050211
  Serious: Yes (Hospitalization)
  Sender: FDA-Public Use
  Company Number: BR-ROCHE-363632

PATIENT
  Age: 55 Year
  Sex: Female
  Weight: 57.3 kg

DRUGS (21)
  1. MYCOPHENOLATE MOFETIL [Suspect]
     Route: 048
     Dates: start: 20031212, end: 20040329
  2. MYCOPHENOLATE MOFETIL [Suspect]
     Route: 048
     Dates: start: 20040331
  3. DACLIZUMAB [Suspect]
     Route: 042
     Dates: start: 20031212, end: 20031212
  4. DACLIZUMAB [Suspect]
     Dosage: 60MG ON 26 DEC 2003, 10 JAN 2004, 19 JAN 2004 AND 06 FEB 2004.
     Route: 042
     Dates: start: 20031226, end: 20040206
  5. TACROLIMUS [Suspect]
     Route: 048
     Dates: start: 20031212
  6. TACROLIMUS [Suspect]
     Route: 048
     Dates: start: 20040108
  7. TACROLIMUS [Suspect]
     Route: 048
     Dates: start: 20040112
  8. PREDNISONE [Suspect]
     Route: 048
     Dates: start: 20031212
  9. PREDNISONE [Suspect]
     Route: 048
     Dates: start: 20031220
  10. PREDNISONE [Suspect]
     Route: 048
     Dates: start: 20031226
  11. PREDNISONE [Suspect]
     Route: 048
     Dates: start: 20040105
  12. PREDNISONE [Suspect]
     Route: 048
     Dates: start: 20040114
  13. PREDNISONE [Suspect]
     Route: 048
     Dates: start: 20040122
  14. PREDNISONE [Suspect]
     Route: 048
     Dates: start: 20040304
  15. PREDNISONE [Suspect]
     Route: 048
     Dates: start: 20040310
  16. CLONIDINE HCL [Concomitant]
     Route: 048
     Dates: start: 20031219
  17. ATENOLOL [Concomitant]
     Route: 048
     Dates: start: 20040227
  18. OMEPRAZOLE [Concomitant]
     Route: 048
     Dates: start: 20031228
  19. FUROSEMIDE [Concomitant]
     Route: 048
     Dates: start: 20031229
  20. FOLIC ACID [Concomitant]
     Route: 048
     Dates: start: 20031223
  21. VITAMIN B COMPLEX CAP [Concomitant]
     Route: 048
     Dates: start: 20031223

REACTIONS (2)
  - GLAUCOMA [None]
  - VOMITING [None]
